FAERS Safety Report 8151105-3 (Version None)
Quarter: 2012Q1

REPORT INFORMATION
  Report Type: 
  Country: None (occurrence: None)
  Receive Date: 20120220
  Receipt Date: 20120209
  Transmission Date: 20120608
  Serious: Yes (Hospitalization)
  Sender: FDA-Public Use
  Company Number: US-GLAXOSMITHKLINE-A0875830A

PATIENT
  Age: 65 Year
  Sex: Male
  Weight: 110.9 kg

DRUGS (3)
  1. AVANDIA [Suspect]
     Indication: DIABETES MELLITUS
     Dosage: 2MG TWICE PER DAY
     Route: 048
     Dates: start: 20051206, end: 20071201
  2. AVANDAMET [Suspect]
     Indication: DIABETES MELLITUS
     Route: 048
     Dates: start: 20051206, end: 20071201
  3. AVANDARYL [Suspect]
     Indication: DIABETES MELLITUS
     Route: 048
     Dates: start: 20060626, end: 20061019

REACTIONS (8)
  - ATRIAL FIBRILLATION [None]
  - AORTIC VALVE REPLACEMENT [None]
  - LEFT VENTRICULAR DYSFUNCTION [None]
  - CARDIAC ASSISTANCE DEVICE USER [None]
  - CORONARY ARTERY BYPASS [None]
  - AORTIC STENOSIS [None]
  - IMPLANTABLE DEFIBRILLATOR INSERTION [None]
  - CARDIAC FAILURE CONGESTIVE [None]
